FAERS Safety Report 6556536-0 (Version None)
Quarter: 2010Q1

REPORT INFORMATION
  Report Type: 
  Country: None (occurrence: None)
  Receive Date: 20100128
  Receipt Date: 20100118
  Transmission Date: 20100710
  Serious: Yes (Life-Threatening, Hospitalization, Other)
  Sender: FDA-Public Use
  Company Number: GB-PFIZER INC-2008051576

PATIENT
  Age: 65 Year
  Sex: Female

DRUGS (5)
  1. EPIRUBICIN HYDROCHLORIDE [Suspect]
     Indication: BREAST CANCER
     Dosage: UNK
     Dates: start: 20060601, end: 20061001
  2. CYCLOPHOSPHAMIDE [Suspect]
     Indication: BREAST CANCER
     Dosage: UNK
     Dates: start: 20060601, end: 20061001
  3. TAXOTERE [Concomitant]
     Indication: BREAST CANCER
     Dosage: UNK
     Dates: start: 20061201, end: 20061201
  4. FLUOROURACIL [Concomitant]
     Indication: BREAST CANCER
     Dosage: UNK
     Dates: start: 20070101, end: 20070101
  5. LETROZOLE [Concomitant]
     Indication: BREAST CANCER
     Dosage: 2.5 MG, 1X/DAY
     Route: 048
     Dates: start: 20070101

REACTIONS (1)
  - PROGRESSIVE MULTIFOCAL LEUKOENCEPHALOPATHY [None]
